FAERS Safety Report 7282312-X (Version None)
Quarter: 2010Q4

REPORT INFORMATION
  Report Type: 
  Country: None (occurrence: None)
  Receive Date: 20101221
  Receipt Date: 20101004
  Transmission Date: 20110411
  Serious: Yes (Other)
  Sender: FDA-Public Use
  Company Number: WAES 1010USA00225

PATIENT
  Sex: Male

DRUGS (2)
  1. JANUVIA [Suspect]
     Indication: HYPERGLYCAEMIA
     Dosage: PO
     Route: 048
     Dates: start: 20100801, end: 20100901
  2. GLIPIZIDE [Concomitant]

REACTIONS (1)
  - PANCREATITIS [None]
